FAERS Safety Report 6882959-6 (Version None)
Quarter: 2010Q3

REPORT INFORMATION
  Report Type: 
  Country: None (occurrence: None)
  Receive Date: 20100729
  Receipt Date: 20100720
  Transmission Date: 20110219
  Serious: Yes (Hospitalization)
  Sender: FDA-Public Use
  Company Number: ES-CELGENEUS-144-C5013-10071604

PATIENT
  Sex: Male
  Weight: 75 kg

DRUGS (4)
  1. LENALIDOMIDE [Suspect]
     Indication: MULTIPLE MYELOMA
     Route: 048
     Dates: start: 20100701, end: 20100718
  2. LENALIDOMIDE [Suspect]
     Route: 048
     Dates: start: 20100225
  3. DEXAMETHASONE [Suspect]
     Indication: MULTIPLE MYELOMA
     Route: 048
     Dates: start: 20100701, end: 20100718
  4. DEXAMETHASONE [Suspect]
     Route: 048
     Dates: start: 20100218

REACTIONS (2)
  - ACUTE CORONARY SYNDROME [None]
  - ATRIAL FIBRILLATION [None]
